FAERS Safety Report 23475601 (Version 1)
Quarter: 2024Q1

REPORT INFORMATION
  Report Type: Report from Study
  Country: US (occurrence: US)
  Receive Date: 20240204
  Receipt Date: 20240204
  Transmission Date: 20240409
  Serious: No
  Sender: FDA-Public Use
  Company Number: US-EXELIXIS-CABO-23060150

PATIENT
  Sex: Female

DRUGS (6)
  1. CABOMETYX [Suspect]
     Active Substance: CABOZANTINIB S-MALATE
     Indication: Hepatic neuroendocrine tumour
     Dosage: 40 MG, QD
     Dates: start: 20221209
  2. CABOMETYX [Suspect]
     Active Substance: CABOZANTINIB S-MALATE
     Dosage: 20 MG
  3. SIMVASTATIN [Concomitant]
     Active Substance: SIMVASTATIN
  4. FENTANYL [Concomitant]
     Active Substance: FENTANYL\FENTANYL CITRATE
  5. LISINOPRIL [Concomitant]
     Active Substance: LISINOPRIL
  6. SANDOSTATIN [Concomitant]
     Active Substance: OCTREOTIDE ACETATE

REACTIONS (15)
  - Glossodynia [Unknown]
  - Oropharyngeal pain [Unknown]
  - Skin fissures [Unknown]
  - Stomatitis [Not Recovered/Not Resolved]
  - Vomiting [Recovered/Resolved]
  - Diarrhoea [Recovered/Resolved]
  - Blood pressure increased [Recovering/Resolving]
  - Blood glucose increased [Unknown]
  - Dysphonia [Unknown]
  - Dry skin [Unknown]
  - Dry mouth [Unknown]
  - Weight decreased [Unknown]
  - Eating disorder [Unknown]
  - Product dose omission issue [Unknown]
  - Off label use [Unknown]
